FAERS Safety Report 7726284-X (Version None)
Quarter: 2011Q3

REPORT INFORMATION
  Report Type: 
  Country: None (occurrence: None)
  Receive Date: 20110902
  Receipt Date: 20110107
  Transmission Date: 20111222
  Serious: No
  Sender: FDA-Public Use
  Company Number: US-BAYER-2011-021638

PATIENT
  Age: 28 Year
  Sex: Male

DRUGS (2)
  1. ULTRAVIST 150 [Suspect]
     Indication: COMPUTERISED TOMOGRAM
     Dosage: 3.0 ML/SEC
     Route: 042
     Dates: start: 20110101
  2. READI-CAT [Concomitant]

REACTIONS (1)
  - NAUSEA [None]
